FAERS Safety Report 6567726-5 (Version None)
Quarter: 2010Q1

REPORT INFORMATION
  Report Type: 
  Country: None (occurrence: None)
  Receive Date: 20100203
  Receipt Date: 20100127
  Transmission Date: 20100710
  Serious: Yes (Other)
  Sender: FDA-Public Use
  Company Number: BR-PFIZER INC-2010010815

PATIENT
  Age: 39 Year
  Sex: Female
  Weight: 86 kg

DRUGS (6)
  1. DEPO-PROVERA [Suspect]
     Indication: OFF LABEL USE
     Dosage: 150 MG, EVERY 3 MONTHS
     Route: 030
     Dates: start: 20090813
  2. DEPO-PROVERA [Suspect]
     Indication: ENDOMETRIOSIS
  3. TENOXICAM [Concomitant]
     Dosage: 20MG
     Dates: start: 20091001
  4. ACETAMINOPHEN [Concomitant]
     Dosage: 500MG
     Dates: start: 20091001
  5. RANITIDINE [Concomitant]
     Dosage: 150MG
     Dates: start: 20091001
  6. CARISOPRODOL [Concomitant]
     Dosage: UNK
     Dates: start: 20091001

REACTIONS (5)
  - AMENORRHOEA [None]
  - CYST [None]
  - HEADACHE [None]
  - NAUSEA [None]
  - UTERINE LEIOMYOMA [None]
